FAERS Safety Report 24788636 (Version 1)
Quarter: 2024Q4

REPORT INFORMATION
  Report Type: Spontaneous
  Country: CA (occurrence: CA)
  Receive Date: 20241230
  Receipt Date: 20241230
  Transmission Date: 20250115
  Serious: Yes (Other)
  Sender: ASSERTIO THERAPEUTICS
  Company Number: CA-ASSERTIO THERAPEUTICS, INC.-CA-2024AST000411

PATIENT
  Age: 70 Year

DRUGS (6)
  1. DICLOFENAC POTASSIUM [Suspect]
     Active Substance: DICLOFENAC POTASSIUM
     Indication: Myalgia
     Dosage: UNK
     Route: 065
  2. DICLOFENAC POTASSIUM [Suspect]
     Active Substance: DICLOFENAC POTASSIUM
     Indication: Back pain
  3. DICLOFENAC POTASSIUM [Suspect]
     Active Substance: DICLOFENAC POTASSIUM
     Indication: Arthralgia
  4. DICLOFENAC [Suspect]
     Active Substance: DICLOFENAC
     Indication: Myalgia
     Dosage: UNK
     Route: 065
  5. DICLOFENAC [Suspect]
     Active Substance: DICLOFENAC
     Indication: Back pain
  6. DICLOFENAC [Suspect]
     Active Substance: DICLOFENAC
     Indication: Arthralgia

REACTIONS (3)
  - Myocardial infarction [Unknown]
  - Product use issue [Unknown]
  - Off label use [Unknown]
